FAERS Safety Report 9055253 (Version 1)
Quarter: 2013Q1

REPORT INFORMATION
  Report Type: Spontaneous
  Country: US (occurrence: US)
  Receive Date: 20130206
  Receipt Date: 20130206
  Transmission Date: 20140127
  Serious: Yes (Death)
  Sender: FDA-Public Use
  Company Number: US-GILEAD-2013-0068875

PATIENT
  Age: 69 None
  Sex: Female

DRUGS (2)
  1. LETAIRIS [Suspect]
     Indication: COR PULMONALE CHRONIC
     Dosage: 10 MG, UNK
     Dates: start: 20081224
  2. LETAIRIS [Suspect]
     Dosage: 10 MG, QD
     Dates: start: 20081226

REACTIONS (1)
  - Death [Fatal]
